FAERS Safety Report 8351785 (Version 5)
Quarter: 2014Q1

REPORT INFORMATION
  Report Type: Report from Study
  Country: JP (occurrence: JP)
  Receive Date: 20120124
  Receipt Date: 20140128
  Transmission Date: 20141002
  Serious: Yes (Other)
  Sender: FDA-Public Use
  Company Number: JP-GLAXOSMITHKLINE-B0776974A

PATIENT
  Age: 70 Year
  Sex: Female
  Weight: 62 kg

DRUGS (4)
  1. REVOLADE [Suspect]
     Indication: IMMUNE THROMBOCYTOPENIC PURPURA
     Route: 048
     Dates: start: 20111124, end: 20111212
  2. REVOLADE [Suspect]
     Indication: IMMUNE THROMBOCYTOPENIC PURPURA
     Route: 048
     Dates: start: 20111213
  3. UNKNOWN DRUG [Concomitant]
     Indication: IMMUNE THROMBOCYTOPENIC PURPURA
     Route: 065
  4. DANAZOL [Concomitant]
     Indication: IMMUNE THROMBOCYTOPENIC PURPURA
     Route: 048

REACTIONS (2)
  - IIIrd nerve paralysis [Recovered/Resolved]
  - Muscular weakness [Not Recovered/Not Resolved]
